FAERS Safety Report 6087178-1 (Version None)
Quarter: 2009Q1

REPORT INFORMATION
  Report Type: 
  Country: None (occurrence: None)
  Receive Date: 20090223
  Receipt Date: 20090210
  Transmission Date: 20090719
  Serious: Yes (Life-Threatening, Hospitalization)
  Sender: FDA-Public Use
  Company Number: GB-MERCK-0901GBR00073

PATIENT
  Age: 44 Year
  Sex: Female

DRUGS (13)
  1. DECADRON [Suspect]
     Route: 048
  2. CITALOPRAM [Suspect]
     Indication: DEPRESSION
     Route: 048
  3. METHYLENE BLUE [Suspect]
     Indication: PARATHYROIDECTOMY
     Route: 042
  4. MORPHINE [Suspect]
     Indication: ANALGESIA
     Route: 065
  5. PROPOFOL [Suspect]
     Indication: SEDATION
     Route: 065
  6. REMIFENTANIL HYDROCHLORIDE [Suspect]
     Route: 065
  7. ROCURONIUM BROMIDE [Suspect]
     Route: 065
  8. ASPIRIN [Concomitant]
     Route: 065
  9. ATENOLOL [Concomitant]
     Route: 065
  10. BENDROFLUMETHIAZIDE [Concomitant]
     Route: 065
  11. FELODIPINE [Concomitant]
     Route: 065
  12. ISOSORBIDE MONONITRATE [Concomitant]
     Route: 065
  13. SIMVASTATIN [Concomitant]
     Route: 065

REACTIONS (15)
  - AGITATION [None]
  - AKATHISIA [None]
  - BLOOD CALCIUM INCREASED [None]
  - BLOOD PHOSPHORUS INCREASED [None]
  - C-REACTIVE PROTEIN INCREASED [None]
  - DRUG INTERACTION [None]
  - DRUG TOXICITY [None]
  - EXTENSOR PLANTAR RESPONSE [None]
  - GLASGOW COMA SCALE ABNORMAL [None]
  - HYPERREFLEXIA [None]
  - MYDRIASIS [None]
  - MYOCLONUS [None]
  - PUPILLARY REFLEX IMPAIRED [None]
  - STARING [None]
  - WHITE BLOOD CELL COUNT INCREASED [None]
